FAERS Safety Report 12146394 (Version 1)
Quarter: 2016Q1

REPORT INFORMATION
  Report Type: Spontaneous
  Country: CN (occurrence: CN)
  Receive Date: 20160304
  Receipt Date: 20160304
  Transmission Date: 20160526
  Serious: Yes (Hospitalization)
  Sender: FDA-Public Use
  Company Number: CN-SEBELA IRELAND LIMITED-2016SEB00016

PATIENT
  Age: 80 Year
  Sex: Male

DRUGS (3)
  1. ANTI-HYPERTENSIVES [Concomitant]
  2. ALLOPURINOL. [Suspect]
     Active Substance: ALLOPURINOL
     Indication: GOUT
     Dosage: UNK
     Route: 048
  3. PANAX NOTOGINSENG SAPONINS [Concomitant]

REACTIONS (2)
  - Hypofibrinogenaemia [Recovered/Resolved]
  - Purpura [Recovered/Resolved]
